FAERS Safety Report 6631842-X (Version None)
Quarter: 2010Q1

REPORT INFORMATION
  Report Type: 
  Country: None (occurrence: None)
  Receive Date: 20100310
  Receipt Date: 20100224
  Transmission Date: 20100710
  Serious: Yes (Other)
  Sender: FDA-Public Use
  Company Number: US-GDP-10407573

PATIENT
  Age: 16 Year
  Sex: Female

DRUGS (3)
  1. EPIDUO [Suspect]
     Indication: ACNE
     Dosage: (1 DF QD TOPICAL)
     Route: 061
     Dates: start: 20100201, end: 20100222
  2. SOLODYN [Suspect]
     Indication: ACNE
     Dosage: (65 MG QD ORAL)
     Route: 048
     Dates: start: 20100201
  3. CERAVE MOISTURIZING LOTION (COSMETICS) [Suspect]
     Indication: DRY SKIN
     Dosage: (TOPICAL)
     Route: 061
     Dates: start: 20100201

REACTIONS (7)
  - ACNE [None]
  - CONDITION AGGRAVATED [None]
  - DRUG HYPERSENSITIVITY [None]
  - DRY SKIN [None]
  - ERYTHEMA [None]
  - FURUNCLE [None]
  - SKIN ODOUR ABNORMAL [None]
